FAERS Safety Report 9678546 (Version 1)
Quarter: 2013Q4

REPORT INFORMATION
  Report Type: Spontaneous
  Country: US (occurrence: US)
  Receive Date: 20131108
  Receipt Date: 20131108
  Transmission Date: 20140711
  Serious: Yes (Hospitalization)
  Sender: FDA-Public Use
  Company Number: US-SA-2013SA114061

PATIENT
  Age: 76 Year
  Sex: Female

DRUGS (1)
  1. LANTUS [Suspect]
     Indication: TYPE 2 DIABETES MELLITUS
     Dosage: DOSE:52 UNIT(S)
     Route: 058

REACTIONS (3)
  - Spinal osteoarthritis [Unknown]
  - Spinal column stenosis [Unknown]
  - Incorrect product storage [Unknown]
